FAERS Safety Report 11834032 (Version 2)
Quarter: 2016Q1

REPORT INFORMATION
  Report Type: Spontaneous
  Country: SE (occurrence: SE)
  Receive Date: 20151214
  Receipt Date: 20160210
  Transmission Date: 20160525
  Serious: Yes (Death, Other)
  Sender: FDA-Public Use
  Company Number: SE-TAKEDA-2015TUS017831

PATIENT
  Sex: Male

DRUGS (9)
  1. ENTYVIO [Suspect]
     Active Substance: VEDOLIZUMAB
     Indication: CROHN^S DISEASE
     Dosage: 300 MG, UNK
     Route: 042
     Dates: start: 20151007, end: 20151110
  2. BETAPRED [Concomitant]
     Active Substance: BETAMETHASONE SODIUM PHOSPHATE
     Dosage: UNK
  3. NUTRIFLEX                          /07393601/ [Concomitant]
     Dosage: UNK
  4. CALCICHEW-D3 [Concomitant]
     Active Substance: CALCIUM\CHOLECALCIFEROL
     Dosage: UNK
  5. MATRIFEN [Concomitant]
     Active Substance: FENTANYL
     Dosage: UNK
  6. SOLVEZINK [Concomitant]
     Dosage: UNK
  7. BEHEPAN                            /00056201/ [Concomitant]
     Active Substance: CYANOCOBALAMIN
     Dosage: UNK
  8. FOLACIN                            /00024201/ [Concomitant]
     Active Substance: FOLIC ACID
     Dosage: UNK
  9. DUROFERON [Concomitant]
     Active Substance: FERROUS SULFATE\FERROUS SULFATE, DRIED
     Dosage: UNK

REACTIONS (2)
  - Pneumonia [Fatal]
  - Sepsis [Fatal]

NARRATIVE: CASE EVENT DATE: 20151110
